FAERS Safety Report 14680670 (Version 1)
Quarter: 2018Q1

REPORT INFORMATION
  Report Type: Spontaneous
  Country: RO (occurrence: RO)
  Receive Date: 20180326
  Receipt Date: 20180326
  Transmission Date: 20180509
  Serious: Yes (Other)
  Sender: FDA-Public Use
  Company Number: RO-PFIZER INC-2018119086

PATIENT
  Age: 62 Year
  Sex: Female

DRUGS (13)
  1. IRINOTECAN HCL [Suspect]
     Active Substance: IRINOTECAN HYDROCHLORIDE
     Indication: RECTAL ADENOCARCINOMA
     Dosage: 200 MG/M2, CYCLIC, FREQUENCY: EVERY 3 WEEKS
     Route: 042
  2. IRINOTECAN HCL [Suspect]
     Active Substance: IRINOTECAN HYDROCHLORIDE
     Dosage: UNK
     Route: 042
     Dates: start: 201604, end: 201604
  3. LEUCOVORIN. [Suspect]
     Active Substance: LEUCOVORIN
     Indication: RECTAL CANCER METASTATIC
     Dosage: 400 MG/M2, DAY 1
     Route: 042
  4. IRINOTECAN HCL [Suspect]
     Active Substance: IRINOTECAN HYDROCHLORIDE
     Indication: METASTASES TO LUNG
     Dosage: 200 MG/M2, CYCLIC, FREQUENCY: EVERY 3 WEEKS
     Route: 042
  5. OXALIPLATIN. [Suspect]
     Active Substance: OXALIPLATIN
     Indication: METASTASES TO LUNG
     Dosage: 85 MG/M2, AT EVERY 2 WEEKS
     Route: 042
     Dates: start: 201110
  6. OXALIPLATIN. [Suspect]
     Active Substance: OXALIPLATIN
     Dosage: 85 MG/M2, CYCLIC, FREQUENCY: EVERY 3 WEEKS
     Route: 042
  7. 5-FU [Suspect]
     Active Substance: FLUOROURACIL
     Indication: RECTAL CANCER METASTATIC
     Dosage: 400 MG/M2, BOLUS ON DAY 1
     Route: 042
  8. BEVACIZUMAB. [Suspect]
     Active Substance: BEVACIZUMAB
     Indication: RECTAL CANCER METASTATIC
     Dosage: 5 MG/KG, DAY 1, AT EVERY 2 WEEKS FOR 6 MONTHS
     Route: 042
  9. OXALIPLATIN. [Suspect]
     Active Substance: OXALIPLATIN
     Indication: RECTAL ADENOCARCINOMA
     Dosage: UNK UNK, CYCLIC
     Route: 042
     Dates: start: 201604, end: 201604
  10. OXALIPLATIN. [Suspect]
     Active Substance: OXALIPLATIN
     Dosage: 85 MG/M2, CYCLIC, FREQUENCY: EVERY 3 WEEKS
     Route: 042
  11. IRINOTECAN HCL [Suspect]
     Active Substance: IRINOTECAN HYDROCHLORIDE
     Dosage: 180 MG/M2, EVERY 2 WEEKS
     Route: 042
  12. OXALIPLATIN. [Suspect]
     Active Substance: OXALIPLATIN
     Dosage: UNK UNK, CYCLIC
     Route: 042
     Dates: start: 201604, end: 201604
  13. 5-FU [Suspect]
     Active Substance: FLUOROURACIL
     Dosage: 2400 MG/M2, OVER 46 HOURS IV CONTINUOUS INFUSION, AT EVERY 2 WEEKS
     Route: 042

REACTIONS (5)
  - Peripheral sensory neuropathy [Unknown]
  - Dysphagia [Unknown]
  - Neutropenia [Unknown]
  - Leukopenia [Unknown]
  - Neoplasm progression [Unknown]

NARRATIVE: CASE EVENT DATE: 201506
